FAERS Safety Report 6814772-X (Version None)
Quarter: 2010Q3

REPORT INFORMATION
  Report Type: 
  Country: None (occurrence: None)
  Receive Date: 20100702
  Receipt Date: 20100624
  Transmission Date: 20110219
  Serious: Yes (Hospitalization)
  Sender: FDA-Public Use
  Company Number: A0794782A

PATIENT
  Age: 55 Year
  Sex: Male

DRUGS (2)
  1. AVANDIA [Suspect]
     Dosage: 8MG PER DAY
     Route: 048
     Dates: start: 19990101, end: 20070901
  2. AVANDAMET [Suspect]
     Route: 048
     Dates: start: 20030501, end: 20040501

REACTIONS (5)
  - CARDIAC FAILURE CONGESTIVE [None]
  - CONDITION AGGRAVATED [None]
  - MYOCARDIAL INFARCTION [None]
  - RENAL FAILURE [None]
  - RESPIRATORY FAILURE [None]
